FAERS Safety Report 23157534 (Version 3)
Quarter: 2023Q4

REPORT INFORMATION
  Report Type: Report from Study
  Country: US (occurrence: US)
  Receive Date: 20231108
  Receipt Date: 20231222
  Transmission Date: 20240109
  Serious: Yes (Other)
  Sender: FDA-Public Use
  Company Number: US-002147023-NVSC2023US237547

PATIENT
  Sex: Male

DRUGS (1)
  1. KESIMPTA [Suspect]
     Active Substance: OFATUMUMAB
     Indication: Multiple sclerosis
     Dosage: 20 MG, QMO
     Route: 058
     Dates: start: 20231024

REACTIONS (5)
  - Multiple sclerosis relapse [Unknown]
  - Pain [Recovered/Resolved]
  - Oropharyngeal pain [Unknown]
  - Cough [Unknown]
  - Tinnitus [Unknown]
